FAERS Safety Report 5442761-9 (Version None)
Quarter: 2007Q3

REPORT INFORMATION
  Report Type: 
  Country: None (occurrence: None)
  Receive Date: 20070904
  Receipt Date: 20070816
  Transmission Date: 20080115
  Serious: No
  Sender: FDA-Public Use
  Company Number: US-BOEHRINGER INGELHEIM PHARMACEUTICALS, INC.-2007-BP-19374BP

PATIENT
  Sex: Male

DRUGS (8)
  1. SPIRIVA [Suspect]
     Indication: CHRONIC OBSTRUCTIVE PULMONARY DISEASE
     Route: 055
     Dates: start: 20070815
  2. ALBUTEROL [Concomitant]
     Indication: CHRONIC OBSTRUCTIVE PULMONARY DISEASE
  3. LIPITOR [Concomitant]
     Indication: HYPERLIPIDAEMIA
  4. WARFARIN SODIUM [Concomitant]
     Indication: ATRIAL FIBRILLATION
  5. PRILOSEC [Concomitant]
     Indication: DYSPEPSIA
  6. ASPIRIN [Concomitant]
     Indication: ATRIAL FIBRILLATION
  7. CO Q 10 [Concomitant]
  8. MELATONIN [Concomitant]
     Indication: INSOMNIA

REACTIONS (3)
  - DYSPNOEA [None]
  - PERFORMANCE STATUS DECREASED [None]
  - SPEECH DISORDER [None]
